FAERS Safety Report 7832762-5 (Version None)
Quarter: 2011Q4

REPORT INFORMATION
  Report Type: 
  Country: None (occurrence: None)
  Receive Date: 20111024
  Receipt Date: 20111012
  Transmission Date: 20120403
  Serious: Yes (Hospitalization)
  Sender: FDA-Public Use
  Company Number: US-BIOGENIDEC-2011BI039636

PATIENT
  Age: 58 Year
  Sex: Female

DRUGS (1)
  1. TYSABRI [Suspect]
     Indication: MULTIPLE SCLEROSIS
     Route: 042
     Dates: start: 20110308, end: 20110628

REACTIONS (8)
  - DIARRHOEA [None]
  - TRIGEMINAL NEURALGIA [None]
  - POLYP [None]
  - DYSPNOEA [None]
  - VOMITING [None]
  - HAEMORRHAGE [None]
  - DIZZINESS [None]
  - BLOOD SODIUM DECREASED [None]
